FAERS Safety Report 14250528 (Version 1)
Quarter: 2017Q4

REPORT INFORMATION
  Report Type: Spontaneous
  Country: ZA (occurrence: ZA)
  Receive Date: 20171205
  Receipt Date: 20171205
  Transmission Date: 20180321
  Serious: Yes (Life-Threatening, Other)
  Sender: FDA-Public Use
  Company Number: ZA-ACCORD-061577

PATIENT
  Age: 7 Year
  Sex: Male

DRUGS (2)
  1. PREDNISONE. [Suspect]
     Active Substance: PREDNISONE
     Indication: DERMATOMYOSITIS
  2. METHOTREXATE. [Suspect]
     Active Substance: METHOTREXATE
     Indication: DERMATOMYOSITIS
     Dosage: RESTARTED 2 MONTHS AFTER THE FINAL DOSE OF TRIPLE THERAPY FOR THE MONO-RESISTANT TB.

REACTIONS (2)
  - Tuberculosis [Recovering/Resolving]
  - Joint tuberculosis [Recovering/Resolving]
